FAERS Safety Report 17984724 (Version 3)
Quarter: 2020Q3

REPORT INFORMATION
  Report Type: Spontaneous
  Country: US (occurrence: US)
  Receive Date: 20200706
  Receipt Date: 20200708
  Transmission Date: 20201103
  Serious: Yes (Other)
  Sender: FDA-Public Use
  Company Number: US-SA-2020SA173168

PATIENT

DRUGS (2)
  1. ARAVA [Suspect]
     Active Substance: LEFLUNOMIDE
     Dosage: UNK
     Route: 065
  2. XELJANZ [Concomitant]
     Active Substance: TOFACITINIB CITRATE
     Indication: RHEUMATOID ARTHRITIS
     Dosage: 11 MG, QD
     Route: 048
     Dates: start: 20190520

REACTIONS (7)
  - Rheumatoid arthritis [Not Recovered/Not Resolved]
  - Viral infection [Recovering/Resolving]
  - Dyspnoea [Unknown]
  - Cough [Unknown]
  - Pyrexia [Unknown]
  - Psychiatric symptom [Unknown]
  - Depression [Unknown]
